FAERS Safety Report 5017784-4 (Version None)
Quarter: 2006Q2

REPORT INFORMATION
  Report Type: 
  Country: None (occurrence: None)
  Receive Date: 20060530
  Receipt Date: 20060515
  Transmission Date: 20061013
  Serious: Yes (Other)
  Sender: FDA-Public Use
  Company Number: 2006007563

PATIENT
  Sex: Male

DRUGS (1)
  1. VIAGRA [Suspect]
     Indication: ILL-DEFINED DISORDER

REACTIONS (27)
  - ALANINE AMINOTRANSFERASE INCREASED [None]
  - ASPARTATE AMINOTRANSFERASE INCREASED [None]
  - BENIGN PROSTATIC HYPERPLASIA [None]
  - BLOOD TESTOSTERONE DECREASED [None]
  - BLOOD UREA NITROGEN/CREATININE RATIO INCREASED [None]
  - CALCULUS URINARY [None]
  - DILATATION VENTRICULAR [None]
  - DYSPNOEA [None]
  - DYSURIA [None]
  - ERECTILE DYSFUNCTION [None]
  - GAMMA-GLUTAMYLTRANSFERASE INCREASED [None]
  - HYDRONEPHROSIS [None]
  - HYPERTENSION [None]
  - MICTURITION DISORDER [None]
  - MICTURITION URGENCY [None]
  - NEPHROLITHIASIS [None]
  - NOCTURIA [None]
  - PELVI-URETERIC OBSTRUCTION [None]
  - PENIS DISORDER [None]
  - PEYRONIE'S DISEASE [None]
  - PROSTATIC OBSTRUCTION [None]
  - PROTEIN URINE PRESENT [None]
  - RED BLOOD CELLS URINE [None]
  - THERAPY NON-RESPONDER [None]
  - URGE INCONTINENCE [None]
  - URINARY TRACT OBSTRUCTION [None]
  - URINE ANALYSIS ABNORMAL [None]
